FAERS Safety Report 5742623-3 (Version None)
Quarter: 2008Q2

REPORT INFORMATION
  Report Type: 
  Country: None (occurrence: None)
  Receive Date: 20080515
  Receipt Date: 20080515
  Transmission Date: 20081010
  Serious: Yes (Death)
  Sender: FDA-Public Use
  Company Number: None

PATIENT
  Sex: Male
  Weight: 88.4514 kg

DRUGS (2)
  1. CHANTIX [Suspect]
     Indication: SMOKING CESSATION THERAPY
     Dosage: INCREASING 53/28 DAYS ORAL
     Route: 048
     Dates: start: 20080104
  2. CHANTIX [Suspect]
     Indication: SMOKING CESSATION THERAPY
     Dosage: INCREASING 53/28 DAYS ORAL
     Route: 048
     Dates: start: 20080201

REACTIONS (10)
  - ACALCULIA [None]
  - AMNESIA [None]
  - COMPLETED SUICIDE [None]
  - CONFUSIONAL STATE [None]
  - DEPRESSION [None]
  - DIZZINESS [None]
  - EAR DISCOMFORT [None]
  - EXPRESSIVE LANGUAGE DISORDER [None]
  - FATIGUE [None]
  - TINNITUS [None]
